FAERS Safety Report 8933388 (Version 1)
Quarter: 2012Q4

REPORT INFORMATION
  Report Type: 
  Country: US (occurrence: US)
  Receive Date: 20121128
  Receipt Date: 20121128
  Transmission Date: 20130627
  Serious: Yes (Other)
  Sender: FDA-Public Use
  Company Number: US-BAYER-2012-124532

PATIENT
  Age: 72 Year
  Sex: Female
  Weight: 61 kg

DRUGS (2)
  1. ALKA-SELTZER PLUS COLD + COUGH [Suspect]
     Indication: COLD SYMPTOMS
     Dosage: 1 DF, ONCE
     Route: 048
     Dates: start: 20121125, end: 20121125
  2. ANTIHYPERTENSIVES [Concomitant]

REACTIONS (2)
  - Choking [Recovered/Resolved]
  - Oropharyngeal discomfort [Recovered/Resolved]
